FAERS Safety Report 4403752-X (Version None)
Quarter: 2004Q3

REPORT INFORMATION
  Report Type: 
  Country: None (occurrence: None)
  Receive Date: 20040719
  Receipt Date: 20040709
  Transmission Date: 20050211
  Serious: Yes (Death)
  Sender: FDA-Public Use
  Company Number: 2004-06-1031

PATIENT
  Age: 67 Year
  Sex: Male
  Weight: 83.4619 kg

DRUGS (1)
  1. INTRON A [Suspect]
     Indication: RENAL CELL CARCINOMA STAGE UNSPECIFIED
     Dosage: TIW
     Dates: start: 20000105, end: 20031031

REACTIONS (1)
  - DEATH [None]
